FAERS Safety Report 16032754 (Version 1)
Quarter: 2019Q1

REPORT INFORMATION
  Report Type: Spontaneous
  Country: US (occurrence: US)
  Receive Date: 20190305
  Receipt Date: 20190305
  Transmission Date: 20190418
  Serious: No
  Sender: FDA-Public Use
  Company Number: US-IMPAX LABORATORIES, LLC-2018-IPXL-01941

PATIENT
  Age: 65 Year
  Sex: Male
  Weight: 113 kg

DRUGS (7)
  1. RYTARY [Suspect]
     Active Substance: CARBIDOPA\LEVODOPA
     Dosage: 36.25/145 MG, UNK
     Route: 048
     Dates: start: 2018, end: 2018
  2. RYTARY [Suspect]
     Active Substance: CARBIDOPA\LEVODOPA
     Dosage: 61.25/245MG, TWO CAPSULES, THREE TIMES A DAY
     Route: 048
     Dates: start: 2018
  3. ATORVASTATIN [Concomitant]
     Active Substance: ATORVASTATIN
     Indication: BLOOD CHOLESTEROL INCREASED
     Dosage: 20 MG, ONCE AT NIGHT
     Route: 048
  4. RYTARY [Suspect]
     Active Substance: CARBIDOPA\LEVODOPA
     Indication: PARKINSON^S DISEASE
     Dosage: 23.75/ 95 MG, UNK
     Route: 048
     Dates: start: 2018, end: 2018
  5. RYTARY [Suspect]
     Active Substance: CARBIDOPA\LEVODOPA
     Dosage: 48.75/195 MG, ONE CAPSULE, THREE TIMES A DAY
     Route: 048
     Dates: start: 2018, end: 2018
  6. RYTARY [Suspect]
     Active Substance: CARBIDOPA\LEVODOPA
     Dosage: 61.25/245MG, ONE CAPSULE, THREE TIMES A DAY
     Route: 048
     Dates: start: 2018, end: 2018
  7. RYTARY [Suspect]
     Active Substance: CARBIDOPA\LEVODOPA
     Dosage: 48.75/195 MG, TWO CAPSULES, THREE TIMES A DAY
     Route: 048
     Dates: start: 2018, end: 2018

REACTIONS (2)
  - Drug ineffective [Not Recovered/Not Resolved]
  - Tremor [Recovering/Resolving]

NARRATIVE: CASE EVENT DATE: 2018
